FAERS Safety Report 19135252 (Version 3)
Quarter: 2021Q3

REPORT INFORMATION
  Report Type: Spontaneous
  Country: US (occurrence: US)
  Receive Date: 20210414
  Receipt Date: 20210708
  Transmission Date: 20211014
  Serious: No
  Sender: FDA-Public Use
  Company Number: US-JNJFOC-20210419624

PATIENT
  Age: 66 Year
  Sex: Male
  Weight: 89.44 kg

DRUGS (6)
  1. RISPERDAL CONSTA [Suspect]
     Active Substance: RISPERIDONE
  2. LISINOPRIL. [Suspect]
     Active Substance: LISINOPRIL
     Indication: HYPERTENSION
     Route: 048
     Dates: start: 20210322, end: 20210326
  3. RISPERDAL CONSTA [Suspect]
     Active Substance: RISPERIDONE
  4. RISPERDAL CONSTA [Suspect]
     Active Substance: RISPERIDONE
     Indication: PRODUCT USED FOR UNKNOWN INDICATION
     Dosage: 2MG, IN GLUTEAL MUSCLE
     Route: 030
     Dates: start: 200708
  5. MERIZYME [Concomitant]
     Indication: ADVERSE EVENT
  6. RISPERDAL CONSTA [Suspect]
     Active Substance: RISPERIDONE

REACTIONS (4)
  - Decreased appetite [Unknown]
  - Liver disorder [Unknown]
  - Hepatic pain [Unknown]
  - Headache [Unknown]

NARRATIVE: CASE EVENT DATE: 202103
